FAERS Safety Report 6229933-0 (Version None)
Quarter: 2009Q2

REPORT INFORMATION
  Report Type: 
  Country: None (occurrence: None)
  Receive Date: 20090615
  Receipt Date: 20090604
  Transmission Date: 20091009
  Serious: Yes (Other)
  Sender: FDA-Public Use
  Company Number: US-ELI_LILLY_AND_COMPANY-US200906001567

PATIENT
  Age: 60 Year
  Sex: Female

DRUGS (1)
  1. BYETTA [Suspect]
     Dosage: 10 UG, UNKNOWN
     Route: 058
     Dates: start: 20060101, end: 20090101

REACTIONS (4)
  - BLOOD AMYLASE INCREASED [None]
  - CHOLECYSTITIS [None]
  - LIPASE INCREASED [None]
  - WEIGHT DECREASED [None]
